FAERS Safety Report 23695932 (Version 1)
Quarter: 2024Q2

REPORT INFORMATION
  Report Type: Spontaneous
  Country: FR (occurrence: FR)
  Receive Date: 20240402
  Receipt Date: 20240402
  Transmission Date: 20240716
  Serious: Yes (Hospitalization)
  Sender: FDA-Public Use
  Company Number: FR-AFSSAPS-NT2024000236

PATIENT
  Age: 27 Year
  Sex: Female
  Weight: 60 kg

DRUGS (11)
  1. KETOPROFEN [Suspect]
     Active Substance: KETOPROFEN
     Indication: Anaesthesia
     Dosage: 100 MILLIGRAM
     Route: 042
     Dates: start: 20231221, end: 20231221
  2. EPHEDRINE [Suspect]
     Active Substance: EPHEDRINE
     Indication: Anaesthesia
     Dosage: 9 MILLIGRAM
     Route: 042
     Dates: start: 20231221, end: 20231221
  3. ACETAMINOPHEN [Suspect]
     Active Substance: ACETAMINOPHEN
     Indication: Anaesthesia
     Dosage: 1 GRAM
     Route: 042
     Dates: start: 20231221, end: 20231221
  4. ATROPINE [Suspect]
     Active Substance: ATROPINE\ATROPINE SULFATE
     Indication: Anaesthesia
     Dosage: 1 MILLIGRAM
     Route: 042
     Dates: start: 20231221, end: 20231221
  5. SUFENTANIL [Suspect]
     Active Substance: SUFENTANIL
     Indication: Anaesthesia
     Dosage: 15 MICROGRAM
     Route: 042
     Dates: start: 20231221, end: 20231221
  6. ACUPAN [Suspect]
     Active Substance: NEFOPAM HYDROCHLORIDE
     Indication: Anaesthesia
     Dosage: 20 MILLIGRAM
     Route: 042
     Dates: start: 20231221, end: 20231221
  7. ATRACURIUM [Suspect]
     Active Substance: ATRACURIUM
     Indication: Anaesthesia
     Dosage: 25 MILLIGRAM
     Route: 042
     Dates: start: 20231221, end: 20231221
  8. NEOSTIGMINE [Suspect]
     Active Substance: NEOSTIGMINE
     Indication: Anaesthesia
     Dosage: 2.5 MILLIGRAM
     Route: 042
     Dates: start: 20231221, end: 20231221
  9. KETAMINE [Suspect]
     Active Substance: KETAMINE
     Indication: Anaesthesia
     Dosage: 20 MILLIGRAM
     Route: 042
     Dates: start: 20231221, end: 20231221
  10. DEXAMETHASONE [Suspect]
     Active Substance: DEXAMETHASONE
     Indication: Anaesthesia
     Dosage: 8 MILLIGRAM
     Route: 042
     Dates: start: 20231221, end: 20231221
  11. PROPOFOL [Suspect]
     Active Substance: PROPOFOL
     Indication: Anaesthesia
     Dosage: 400 MILLIGRAM
     Route: 042
     Dates: start: 20231221, end: 20231221

REACTIONS (1)
  - Chorea [Recovered/Resolved]

NARRATIVE: CASE EVENT DATE: 20231221
